FAERS Safety Report 25159071 (Version 1)
Quarter: 2025Q2

REPORT INFORMATION
  Report Type: Report from Study
  Country: US (occurrence: US)
  Receive Date: 20250404
  Receipt Date: 20250404
  Transmission Date: 20250717
  Serious: Yes (Other)
  Sender: ACADIA PHARMACEUTICALS
  Company Number: US-ACADIA PHARMACEUTICALS INC.-ACA-2025-PIM-000279

PATIENT
  Sex: Female

DRUGS (23)
  1. NUPLAZID [Suspect]
     Active Substance: PIMAVANSERIN TARTRATE
     Indication: Parkinson^s disease psychosis
     Dosage: 34 MILLIGRAM, QD (AT BEDTIME)
     Route: 048
  2. NUPLAZID [Suspect]
     Active Substance: PIMAVANSERIN TARTRATE
     Indication: Agitation
  3. ELIQUIS [Concomitant]
     Active Substance: APIXABAN
     Dosage: 1 DOSAGE FORM, QD
     Route: 048
  4. CALTRATE WITH VITAMIN D [Concomitant]
     Active Substance: CALCIUM CARBONATE\CHOLECALCIFEROL
     Dosage: 600-20 MG-MCG (2 DOSAGE FORM, QD)
     Route: 048
  5. RYTARY [Concomitant]
     Active Substance: CARBIDOPA\LEVODOPA
     Indication: Parkinson^s disease
     Dosage: 61.25-245 MG, 2 DOSAGE FORM, BID (TAKEN 2 CAPSULES AT 2 PM AND 2 CAPSULES AS 7PM)
     Route: 048
     Dates: start: 20230123
  6. RYTARY [Concomitant]
     Active Substance: CARBIDOPA\LEVODOPA
     Dosage: 148.75-195 MG, DOSAGE FORM, QID
     Route: 048
     Dates: end: 20230329
  7. RYTARY [Concomitant]
     Active Substance: CARBIDOPA\LEVODOPA
     Dosage: 61.25-245 MG, 2 DOSAGE FORM, QID (AT 6 AM, 11 AM, 4 PM, AND 9 PM) 9 PM DOSE IS PRN
     Route: 048
  8. RYTARY [Concomitant]
     Active Substance: CARBIDOPA\LEVODOPA
     Dosage: 61.25-245 MG, 2 DOSAGE FORM, TID (AT 8AM, 1PM, AND 6 PM)
     Route: 048
  9. CARBIDOPA\LEVODOPA [Concomitant]
     Active Substance: CARBIDOPA\LEVODOPA
     Indication: Parkinson^s disease
     Dosage: 25-100 MG, 2 DOSAGE FORM, QID
     Route: 048
     Dates: end: 20221004
  10. CARBIDOPA\LEVODOPA [Concomitant]
     Active Substance: CARBIDOPA\LEVODOPA
     Indication: Dyskinesia
     Dosage: 25-100 MG, 1 DOSAGE FORM, QID
     Route: 048
  11. CARBIDOPA\LEVODOPA [Concomitant]
     Active Substance: CARBIDOPA\LEVODOPA
     Indication: On and off phenomenon
     Dosage: 25-100 MG, HALF TABLET, QID
     Route: 048
  12. PROLIA [Concomitant]
     Active Substance: DENOSUMAB
     Route: 058
  13. LEVOTHYROXINE SODIUM [Concomitant]
     Active Substance: LEVOTHYROXINE SODIUM
     Dosage: 1 DOSAGE FORM, QD (IN THE MORNING ON A EMPTY STOMACH)
     Route: 048
  14. LORATADINE [Concomitant]
     Active Substance: LORATADINE
     Dosage: 1 DOSAGE FORM, QD
     Route: 048
  15. LORAZEPAM [Concomitant]
     Active Substance: LORAZEPAM
     Route: 048
  16. MELATONIN [Concomitant]
     Active Substance: MELATONIN
     Indication: Sleep disorder
     Dosage: 1 DOSAGE FORM, QD (AT BEDTIME)
     Route: 048
  17. MIRTAZAPINE [Concomitant]
     Active Substance: MIRTAZAPINE
     Dosage: 1 DOSAGE FORM, QD (AT BEDTIME)
     Route: 048
  18. NYSTATIN [Concomitant]
     Active Substance: NYSTATIN
     Dosage: 100000 UNIT/GM, BID
     Route: 061
  19. POLYETHYLENE GLYCOL 3350 [Concomitant]
     Active Substance: POLYETHYLENE GLYCOL 3350
     Dosage: 17GM IN 8OZ BY MOUTH, DAILY AS NEEDED
     Route: 048
  20. SEROQUEL XR [Concomitant]
     Active Substance: QUETIAPINE FUMARATE
     Indication: Rapid eye movement sleep behaviour disorder
     Dosage: 1 DOSAGE FORM, QD (IN THE EVENING)
     Route: 048
  21. SENEXON-S [Concomitant]
     Active Substance: DOCUSATE SODIUM\SENNOSIDES A AND B
     Dosage: 1 DOSAGE FORM, BID
     Route: 048
  22. SULFAMETHOXAZOLE AND TRIMETHOPRIM [Concomitant]
     Active Substance: SULFAMETHOXAZOLE\TRIMETHOPRIM
     Dosage: 1 DOSAGE FORM, BID (EVERY 12 HOURS)
     Route: 048
  23. GEMTESA [Concomitant]
     Active Substance: VIBEGRON
     Dosage: 1 DOSAGE FORM, QD
     Route: 048

REACTIONS (14)
  - Delirium [Not Recovered/Not Resolved]
  - Hallucination [Not Recovered/Not Resolved]
  - Anxiety [Not Recovered/Not Resolved]
  - Delusion [Not Recovered/Not Resolved]
  - Tremor [Unknown]
  - Depression [Unknown]
  - Asocial behaviour [Unknown]
  - Abnormal behaviour [Unknown]
  - Incontinence [Unknown]
  - Stress [Unknown]
  - Living in residential institution [Not Recovered/Not Resolved]
  - Agitation [Unknown]
  - Product use issue [Recovered/Resolved]
  - Product use in unapproved indication [Unknown]
